FAERS Safety Report 8798704 (Version 1)
Quarter: 2012Q4

REPORT INFORMATION
  Report Type: Report from Study
  Country: DE (occurrence: DE)
  Receive Date: 20120920
  Receipt Date: 20120920
  Transmission Date: 20130627
  Serious: Yes (Hospitalization, Other)
  Sender: FDA-Public Use
  Company Number: DE-ROCHE-1021489

PATIENT
  Age: 63 Year
  Sex: Male
  Weight: 67.7 kg

DRUGS (32)
  1. AVASTIN [Suspect]
     Indication: BRAIN NEOPLASM MALIGNANT
     Dosage: Last dose prior to SAE: 29/Aug/2012.
     Route: 042
     Dates: start: 20110831
  2. IRINOTECAN HYDROCHLORIDE [Suspect]
     Indication: BRAIN NEOPLASM MALIGNANT
     Route: 042
     Dates: start: 20111026
  3. TEMOZOLOMIDE [Suspect]
     Indication: BRAIN NEOPLASM MALIGNANT
     Route: 048
  4. LAMOTRIGINE [Suspect]
     Indication: CONVULSION
     Route: 065
     Dates: start: 20120201, end: 20120215
  5. LAMOTRIGINE [Suspect]
     Route: 065
     Dates: start: 20120215, end: 20120224
  6. LAMOTRIGINE [Suspect]
     Route: 065
     Dates: start: 20120224, end: 201207
  7. LAMOTRIGINE [Suspect]
     Route: 065
     Dates: start: 20120801, end: 201208
  8. LAMOTRIGINE [Suspect]
     Route: 065
     Dates: start: 20120829
  9. LEVETIRACETAM [Suspect]
     Indication: CONVULSION
     Route: 065
     Dates: start: 20111201, end: 20111207
  10. LEVETIRACETAM [Suspect]
     Route: 065
     Dates: start: 20111207, end: 20120215
  11. LEVETIRACETAM [Suspect]
     Route: 065
     Dates: start: 201207, end: 20120904
  12. LEVETIRACETAM [Suspect]
     Route: 065
     Dates: start: 20120904
  13. DEXAMETHASON [Concomitant]
     Dosage: 4 MG/1
     Route: 065
     Dates: start: 20111005, end: 20111031
  14. DEXAMETHASON [Concomitant]
     Dosage: 2 MG/1
     Route: 065
     Dates: start: 201110, end: 20111031
  15. DEXAMETHASON [Concomitant]
     Dosage: 3 MG/2
     Route: 065
     Dates: start: 20111031, end: 20111123
  16. DEXAMETHASON [Concomitant]
     Dosage: 3 Mg/1
     Route: 065
     Dates: start: 20111123
  17. SIMVASTATIN [Concomitant]
     Dosage: 30 MG/1
     Route: 065
  18. EUTHYROX [Concomitant]
     Route: 065
  19. EUTHYROX [Concomitant]
     Route: 065
     Dates: start: 201207
  20. LISINOPRIL [Concomitant]
     Dosage: 20 MG/2
     Route: 065
  21. LISINOPRIL [Concomitant]
     Route: 065
  22. HCT BETA [Concomitant]
     Dosage: 20 MG/1
     Route: 065
     Dates: end: 20111031
  23. HCT BETA [Concomitant]
     Dosage: 12.5 MG
     Route: 065
     Dates: start: 20111031
  24. FELODIPIN [Concomitant]
     Dosage: 5 MG/1
     Route: 065
  25. MAGNOGENE [Concomitant]
     Dosage: 400 MG/2
     Route: 065
     Dates: start: 20110917, end: 20111010
  26. CITALOPRAM [Concomitant]
     Dosage: 10 MG/1
     Route: 065
     Dates: start: 20111031
  27. ZOPICLON [Concomitant]
     Dosage: 3.75 MG
     Route: 065
     Dates: start: 20111031, end: 201202
  28. METOCLOPRAMID [Concomitant]
     Route: 065
     Dates: start: 201110, end: 201110
  29. LAXOBERAL [Concomitant]
     Route: 065
     Dates: start: 20120201, end: 201204
  30. NEXIUM [Concomitant]
     Route: 065
     Dates: start: 201202
  31. MOVICOL [Concomitant]
     Route: 065
     Dates: start: 201203
  32. RIVOTRIL [Concomitant]
     Route: 065
     Dates: start: 201205

REACTIONS (2)
  - None [Recovered/Resolved]
  - Convulsion [Recovered/Resolved]
